FAERS Safety Report 7309426-X (Version None)
Quarter: 2011Q1

REPORT INFORMATION
  Report Type: 
  Country: None (occurrence: None)
  Receive Date: 20110223
  Receipt Date: 20110210
  Transmission Date: 20110831
  Serious: Yes (Hospitalization)
  Sender: FDA-Public Use
  Company Number: TH-GENENTECH-295880

PATIENT
  Sex: Female
  Weight: 38.2 kg

DRUGS (17)
  1. PREDNISONE [Suspect]
     Dosage: UNK
     Route: 042
     Dates: start: 20091204
  2. VINCRISTINE [Suspect]
     Indication: DIFFUSE LARGE B-CELL LYMPHOMA
     Dosage: 1.4 MG/M2, UNK
     Route: 042
  3. VINCRISTINE [Suspect]
     Dosage: 1.68 MG, UNK
     Route: 042
  4. PREDNISONE [Suspect]
     Route: 048
  5. RITUXIMAB [Suspect]
     Dosage: 484 MG, UNK
     Route: 042
  6. BLINDED DOXORUBICIN [Suspect]
     Dosage: UNK
     Route: 042
     Dates: start: 20091204
  7. BLINDED BEVACIZUMAB [Suspect]
     Dosage: UNK
     Route: 042
     Dates: start: 20091204
  8. PLACEBO [Suspect]
     Dosage: UNK
     Route: 042
     Dates: start: 20091204
  9. CYCLOPHOSPHAMIDE [Suspect]
     Dosage: 900 MG, UNK
     Route: 042
  10. BLINDED RITUXIMAB [Suspect]
     Dosage: UNK
     Route: 042
     Dates: start: 20091204
  11. DOXORUBICIN [Suspect]
     Indication: DIFFUSE LARGE B-CELL LYMPHOMA
     Dosage: 50 MG/M2, UNK
     Route: 042
  12. CYCLOPHOSPHAMIDE [Suspect]
     Dosage: UNK
     Route: 042
     Dates: start: 20091204
  13. CYCLOPHOSPHAMIDE [Suspect]
     Indication: DIFFUSE LARGE B-CELL LYMPHOMA
     Dosage: 750 MG/M2, UNK
     Route: 042
  14. DOXORUBICIN [Suspect]
     Dosage: 60 MG, UNK
     Route: 042
  15. PREDNISONE [Suspect]
     Indication: DIFFUSE LARGE B-CELL LYMPHOMA
     Dosage: 100 MG, UNK
     Route: 048
  16. RITUXIMAB [Suspect]
     Indication: DIFFUSE LARGE B-CELL LYMPHOMA
     Dosage: 375 MG/M2, UNK
     Route: 042
  17. VINCRISTINE [Suspect]
     Dosage: UNK
     Route: 042
     Dates: start: 20091204

REACTIONS (2)
  - FEBRILE NEUTROPENIA [None]
  - PNEUMONIA [None]
